FAERS Safety Report 15920830 (Version 2)
Quarter: 2019Q1

REPORT INFORMATION
  Report Type: Report from Study
  Country: US (occurrence: US)
  Receive Date: 20190205
  Receipt Date: 20190221
  Transmission Date: 20190417
  Serious: Yes (Other)
  Sender: FDA-Public Use
  Company Number: US-BAYER-2019-018469

PATIENT
  Age: 55 Year
  Sex: Male

DRUGS (1)
  1. STIVARGA [Suspect]
     Active Substance: REGORAFENIB
     Indication: COLON CANCER METASTATIC
     Dosage: 120 MG, QD (FOR 21 DAYS ON AND 7 DAYS OFF)
     Route: 048
     Dates: start: 20190117

REACTIONS (5)
  - Neuropathy peripheral [Not Recovered/Not Resolved]
  - Rash generalised [Recovered/Resolved]
  - Hypertension [None]
  - Burning sensation [Not Recovered/Not Resolved]
  - Off label use [None]

NARRATIVE: CASE EVENT DATE: 2019
